FAERS Safety Report 25570929 (Version 1)
Quarter: 2025Q3

REPORT INFORMATION
  Report Type: Spontaneous
  Country: EU (occurrence: EU)
  Receive Date: 20250717
  Receipt Date: 20250717
  Transmission Date: 20251021
  Serious: Yes (Other)
  Sender: AMGEN
  Company Number: None

PATIENT
  Age: 65 Year
  Sex: Female
  Weight: 55 kg

DRUGS (1)
  1. LUMAKRAS [Suspect]
     Active Substance: SOTORASIB
     Indication: Small cell lung cancer metastatic
     Route: 048
     Dates: start: 20250620, end: 20250708

REACTIONS (5)
  - Blood creatine phosphokinase increased [Unknown]
  - Hyponatraemia [Not Recovered/Not Resolved]
  - Myalgia [Unknown]
  - Hepatic enzyme increased [Not Recovered/Not Resolved]
  - Renal function test abnormal [Not Recovered/Not Resolved]

NARRATIVE: CASE EVENT DATE: 20250628
